FAERS Safety Report 9582209 (Version 1)
Quarter: 2013Q4

REPORT INFORMATION
  Report Type: Spontaneous
  Country: US (occurrence: US)
  Receive Date: 20131002
  Receipt Date: 20131002
  Transmission Date: 20140711
  Serious: No
  Sender: FDA-Public Use
  Company Number: US-AMGEN-USASP2013039016

PATIENT
  Age: 67 Year
  Sex: Female
  Weight: 52.15 kg

DRUGS (12)
  1. ENBREL [Suspect]
     Indication: PRODUCT USED FOR UNKNOWN INDICATION
     Dosage: 50 MG, QWK
     Route: 058
  2. METHOTREXATE [Concomitant]
     Dosage: 25 MG/ML, UNK
  3. ARALEN                             /00001002/ [Concomitant]
     Dosage: 500 MG, UNK
  4. FOLIC ACID [Concomitant]
     Dosage: UNK
  5. PREDNISONE [Concomitant]
     Dosage: 1 MG, UNK
  6. LIPITOR [Concomitant]
     Dosage: 40 MG, UNK
  7. NEXIUM                             /01479302/ [Concomitant]
     Dosage: 40 MG, UNK
  8. PROBIOTIC                          /06395501/ [Concomitant]
     Dosage: UNK
  9. FISH OIL [Concomitant]
     Dosage: UNK
  10. VITAMIN C                          /00008001/ [Concomitant]
     Dosage: 1000 MG, UNK
  11. ZINC [Concomitant]
     Dosage: 50 MG, UNK
  12. ECHINACEA PURPUREA [Concomitant]
     Dosage: 380 MG, UNK

REACTIONS (1)
  - Drug effect incomplete [Unknown]
